FAERS Safety Report 7760205-9 (Version None)
Quarter: 2011Q3

REPORT INFORMATION
  Report Type: 
  Country: None (occurrence: None)
  Receive Date: 20110919
  Receipt Date: 20110913
  Transmission Date: 20111222
  Serious: Yes (Hospitalization)
  Sender: FDA-Public Use
  Company Number: US-GLAXOSMITHKLINE-A0886522A

PATIENT
  Sex: Male
  Weight: 138.6 kg

DRUGS (5)
  1. AVANDIA [Suspect]
     Indication: DIABETES MELLITUS
     Dosage: 8MG PER DAY
     Route: 048
     Dates: start: 20000101, end: 20100301
  2. LESCOL [Concomitant]
  3. GLYBURIDE [Concomitant]
  4. VIOXX [Concomitant]
  5. MICRONASE [Concomitant]

REACTIONS (12)
  - CORONARY ARTERY OCCLUSION [None]
  - RENAL FAILURE [None]
  - BLOOD GLUCOSE INCREASED [None]
  - TRICUSPID VALVE INCOMPETENCE [None]
  - RIB FRACTURE [None]
  - CORONARY ARTERY DISEASE [None]
  - AORTIC DILATATION [None]
  - CARDIOMEGALY [None]
  - MYOCARDIAL INFARCTION [None]
  - CORONARY ARTERY STENOSIS [None]
  - SLEEP APNOEA SYNDROME [None]
  - BLOOD PRESSURE INCREASED [None]
